FAERS Safety Report 5711347-0 (Version None)
Quarter: 2008Q2

REPORT INFORMATION
  Report Type: 
  Country: None (occurrence: None)
  Receive Date: 20080421
  Receipt Date: 20080411
  Transmission Date: 20081010
  Serious: Yes (Other)
  Sender: FDA-Public Use
  Company Number: B0480735A

PATIENT
  Age: 70 Year
  Sex: Female

DRUGS (5)
  1. ARIXTRA [Suspect]
     Indication: THROMBOSIS PROPHYLAXIS
     Dosage: 2.5MG FOUR TIMES PER DAY
     Route: 058
     Dates: start: 20070418, end: 20070424
  2. NADROPARIN [Suspect]
     Dosage: .3MG PER DAY
     Route: 058
     Dates: start: 20040201
  3. ENALAPRIL MALEATE [Concomitant]
     Indication: ESSENTIAL HYPERTENSION
     Dosage: 20MG PER DAY
     Route: 048
     Dates: start: 20070218, end: 20070424
  4. PANTOPRAZOLE SODIUM [Concomitant]
     Dosage: 40MG PER DAY
     Route: 048
     Dates: start: 20070422, end: 20070424
  5. COUMADIN [Concomitant]
     Dosage: 5MG PER DAY
     Route: 048

REACTIONS (3)
  - DEEP VEIN THROMBOSIS [None]
  - DRUG SPECIFIC ANTIBODY PRESENT [None]
  - HEPARIN-INDUCED THROMBOCYTOPENIA [None]
